FAERS Safety Report 8501352-3 (Version None)
Quarter: 2012Q3

REPORT INFORMATION
  Report Type: 
  Country: None (occurrence: None)
  Receive Date: 20120710
  Receipt Date: 20120629
  Transmission Date: 20120928
  Serious: Yes (Hospitalization, Other)
  Sender: FDA-Public Use
  Company Number: FR-TEVA-345226ISR

PATIENT
  Sex: Female

DRUGS (14)
  1. FASLODEX [Concomitant]
     Indication: BREAST CANCER
     Route: 048
     Dates: start: 20070201, end: 20070501
  2. ESTRACYT [Concomitant]
     Indication: BREAST CANCER
     Dosage: 4 DOSAGE FORMS;
     Route: 048
     Dates: start: 20091203, end: 20110101
  3. CYCLOPHOSPHAMIDE [Suspect]
     Route: 042
     Dates: end: 20110701
  4. NAVOBAN [Concomitant]
     Indication: BREAST CANCER
     Dosage: 4 COURSES
     Route: 048
     Dates: start: 20070701, end: 20071101
  5. XELODA [Concomitant]
     Indication: BREAST CANCER
     Dosage: 4 COURSES
     Route: 048
     Dates: start: 20070801, end: 20071101
  6. EPIRUBICIN HYDROCHLORIDE [Suspect]
     Indication: BREAST CANCER
     Dosage: 4 COURSES
     Route: 042
     Dates: start: 20041203, end: 20050202
  7. TAXOTERE [Suspect]
     Indication: BREAST CANCER
     Dosage: 3 COURSES
     Route: 042
     Dates: start: 20050308, end: 20050419
  8. NAVELBINE [Concomitant]
     Indication: BREAST CANCER
     Dosage: 90MG ON DAY 1 AND 8, 4 COURSES
     Route: 042
     Dates: start: 20070701, end: 20071101
  9. ARIMIDEX [Concomitant]
     Indication: BREAST CANCER
     Dosage: 1 DOSAGE FORMS;
     Route: 048
     Dates: start: 20080101, end: 20090201
  10. FEMARA [Concomitant]
     Indication: BREAST CANCER
     Dosage: 1 DOSAGE FORMS;
     Route: 048
     Dates: start: 20050401, end: 20061101
  11. FLUOROURACIL [Suspect]
     Indication: BREAST CANCER
     Dosage: 4 COURSES
     Route: 042
     Dates: start: 20041203, end: 20050202
  12. CYCLOPHOSPHAMIDE [Suspect]
     Indication: BREAST CANCER
     Dosage: 4 COURSES
     Route: 042
     Dates: start: 20041203, end: 20050202
  13. DOXORUBICIN HCL [Suspect]
     Indication: BREAST CANCER
     Dosage: 17 COURSES
     Route: 042
     Dates: start: 20071127, end: 20091105
  14. AROMASIN [Concomitant]
     Indication: BREAST CANCER
     Dosage: 1 DOSAGE FORMS;
     Route: 048
     Dates: start: 20061101, end: 20070201

REACTIONS (1)
  - TONGUE NEOPLASM MALIGNANT STAGE UNSPECIFIED [None]
